FAERS Safety Report 5010566-9 (Version None)
Quarter: 2006Q2

REPORT INFORMATION
  Report Type: 
  Country: None (occurrence: None)
  Receive Date: 20060525
  Receipt Date: 20060314
  Transmission Date: 20061013
  Serious: No
  Sender: FDA-Public Use
  Company Number: US-GLAXOSMITHKLINE-A0597682A

PATIENT
  Age: 26 Year
  Sex: Male
  Weight: 67.3 kg

DRUGS (3)
  1. EPZICOM [Suspect]
     Indication: HIV INFECTION
     Dosage: 1TAB PER DAY
     Route: 048
     Dates: start: 20060101, end: 20060201
  2. LEXIVA [Concomitant]
  3. RITONAVIR [Concomitant]

REACTIONS (1)
  - RASH [None]
